FAERS Safety Report 5477768-9 (Version None)
Quarter: 2007Q3

REPORT INFORMATION
  Report Type: 
  Country: None (occurrence: None)
  Receive Date: 20070905
  Receipt Date: 20070131
  Transmission Date: 20080115
  Serious: Yes (Disabling)
  Sender: FDA-Public Use
  Company Number: WAES 0702USA00210

PATIENT
  Age: 44 Year
  Sex: Female

DRUGS (4)
  1. MAXALT [Suspect]
     Indication: MIGRAINE
     Dosage: 10 MG.PRN.PO; 30 MG/DAILY/PO
     Route: 048
     Dates: start: 20070125, end: 20070125
  2. MAXALT [Suspect]
     Indication: MIGRAINE
     Dosage: 10 MG.PRN.PO; 30 MG/DAILY/PO
     Route: 048
     Dates: start: 20050101
  3. ZOMIG [Concomitant]
  4. AMTRIPTYLINE HYDROCHLORIDE [Concomitant]

REACTIONS (4)
  - ASTHENIA [None]
  - CHEST PAIN [None]
  - DIZZINESS [None]
  - DYSPNOEA [None]
